FAERS Safety Report 11906205 (Version 1)
Quarter: 2016Q1

REPORT INFORMATION
  Report Type: Spontaneous
  Country: US (occurrence: None)
  Receive Date: 20160108
  Receipt Date: 20160108
  Transmission Date: 20160526
  Serious: No
  Sender: FDA-Public Use
  Company Number: None

PATIENT
  Age: 36 Year
  Sex: Male
  Weight: 117.94 kg

DRUGS (2)
  1. PHENTERMINE PHENTERMINE 37.5 [Suspect]
     Active Substance: PHENTERMINE
     Indication: WEIGHT DECREASED
     Route: 048
     Dates: start: 20151110, end: 20160107
  2. WARFARIN [Concomitant]
     Active Substance: WARFARIN

REACTIONS (2)
  - Haematochezia [None]
  - Blood urine present [None]

NARRATIVE: CASE EVENT DATE: 20160106
